FAERS Safety Report 6769992-X (Version None)
Quarter: 2010Q2

REPORT INFORMATION
  Report Type: 
  Country: None (occurrence: None)
  Receive Date: 20100615
  Receipt Date: 20100610
  Transmission Date: 20101027
  Serious: Yes (Hospitalization)
  Sender: FDA-Public Use
  Company Number: FR-WYE-G06255010

PATIENT
  Age: 6 Year
  Sex: Male

DRUGS (2)
  1. ADVIL LIQUI-GELS [Suspect]
     Indication: PYREXIA
     Dosage: DOSE UNKNOWN, ONE INTAKE AT 06:00 PM
     Route: 048
     Dates: start: 20090828, end: 20090828
  2. ADVIL LIQUI-GELS [Suspect]
     Indication: ODYNOPHAGIA

REACTIONS (2)
  - PENILE OEDEMA [None]
  - URTICARIA [None]
